FAERS Safety Report 7127984-5 (Version None)
Quarter: 2010Q4

REPORT INFORMATION
  Report Type: 
  Country: None (occurrence: None)
  Receive Date: 20101130
  Receipt Date: 20101122
  Transmission Date: 20110411
  Serious: Yes (Hospitalization)
  Sender: FDA-Public Use
  Company Number: FR-B.I. PHARMACEUTICALS,INC./RIDGEFIELD-2010-FF-00944FF

PATIENT
  Age: 40 Year
  Sex: Female

DRUGS (9)
  1. CLONIDINE HCL [Suspect]
     Route: 042
     Dates: start: 20101015, end: 20101030
  2. CALCIPARINE [Suspect]
     Dates: start: 20100929, end: 20101116
  3. INIPOMP [Suspect]
  4. KEPPRA [Concomitant]
     Route: 042
     Dates: start: 20100923, end: 20101104
  5. TAVANIC [Concomitant]
     Indication: LUNG INFECTION
     Dosage: 1000 MG
     Route: 042
     Dates: start: 20101016, end: 20101031
  6. BRISTOPEN [Concomitant]
     Indication: LUNG INFECTION
     Dosage: 8 G
     Route: 042
     Dates: start: 20101016, end: 20101031
  7. LOXEN [Concomitant]
     Route: 042
     Dates: start: 20101015, end: 20101105
  8. EUPRESSYL [Concomitant]
     Route: 042
     Dates: start: 20101024, end: 20101101
  9. CLINOMEL [Concomitant]
     Route: 042
     Dates: start: 20101018, end: 20101031

REACTIONS (1)
  - DRUG RASH WITH EOSINOPHILIA AND SYSTEMIC SYMPTOMS [None]
